FAERS Safety Report 8465574-2 (Version None)
Quarter: 2012Q2

REPORT INFORMATION
  Report Type: 
  Country: None (occurrence: None)
  Receive Date: 20120626
  Receipt Date: 20120618
  Transmission Date: 20120825
  Serious: Yes (Hospitalization)
  Sender: FDA-Public Use
  Company Number: US-BAYER-2012-062041

PATIENT
  Age: 40 Year
  Sex: Female
  Weight: 76.644 kg

DRUGS (8)
  1. DROSPIRENONE AND ETHINYL ESTRADIOL [Suspect]
  2. CLINDAMYCIN [Concomitant]
     Dosage: 150 MG, 2 CAPSULES IMMEDIATELY, THEN 1 CAPSULE THREE TIMES DAILY UNTIL ALL TAKEN
     Route: 048
     Dates: start: 20110602
  3. YASMIN [Suspect]
  4. FLUCONAZOLE [Concomitant]
     Dosage: 150 MG, ONE TABLET DAILY
     Route: 048
     Dates: start: 20110623
  5. ACETAMINOPHEN [Concomitant]
     Indication: PYREXIA
     Dosage: 650 MG, EVERY 6 HOURS, PRN
  6. VALACICLOVIR [Concomitant]
     Dosage: 500 MG, BID
     Route: 048
     Dates: start: 20110506
  7. YAZ [Suspect]
  8. DROSPIRENONE AND ETHINYL ESTRADIOL [Suspect]

REACTIONS (2)
  - DEEP VEIN THROMBOSIS [None]
  - PULMONARY EMBOLISM [None]
